FAERS Safety Report 7604577-4 (Version None)
Quarter: 2011Q3

REPORT INFORMATION
  Report Type: 
  Country: None (occurrence: None)
  Receive Date: 20110712
  Receipt Date: 20110706
  Transmission Date: 20111222
  Serious: Yes (Hospitalization)
  Sender: FDA-Public Use
  Company Number: FR-PFIZER INC-2011155603

PATIENT
  Age: 20 Year
  Sex: Female

DRUGS (2)
  1. XANAX [Suspect]
     Dosage: UNK
     Dates: start: 20100421, end: 20100421
  2. DIHYDROERGOTAMINE MESYLATE [Concomitant]
     Dosage: UNK
     Dates: start: 20100421, end: 20100421

REACTIONS (1)
  - SUICIDE ATTEMPT [None]
